FAERS Safety Report 5690497-1 (Version None)
Quarter: 2008Q2

REPORT INFORMATION
  Report Type: 
  Country: None (occurrence: None)
  Receive Date: 20080401
  Receipt Date: 20040419
  Transmission Date: 20081010
  Serious: Yes (Death)
  Sender: FDA-Public Use
  Company Number: US-ROCHE-364988

PATIENT
  Age: 11 Year

DRUGS (1)
  1. ROCEPHIN [Suspect]
     Indication: MENINGITIS MENINGOCOCCAL
     Route: 065

REACTIONS (1)
  - DEATH [None]
